FAERS Safety Report 23506266 (Version 1)
Quarter: 2024Q1

REPORT INFORMATION
  Report Type: Report from Study
  Country: IT (occurrence: IT)
  Receive Date: 20240209
  Receipt Date: 20240209
  Transmission Date: 20240409
  Serious: Yes (Other)
  Sender: FDA-Public Use
  Company Number: None

PATIENT
  Age: 76 Year
  Sex: Male

DRUGS (2)
  1. CAPECITABINE [Suspect]
     Active Substance: CAPECITABINE
     Indication: Gastric cancer
     Dosage: START OF THERAPY 11/2022 - THERAPY EVERY 21 DAYS, D 1 - 14 - II CYCLE
     Dates: start: 20221214, end: 20221228
  2. OXALIPLATIN [Suspect]
     Active Substance: OXALIPLATIN
     Indication: Gastric cancer
     Dosage: START OF THERAPY 11/2022 - THERAPY EVERY 21 DAYS - II CYCLE
     Dates: start: 20221213, end: 20221213

REACTIONS (5)
  - Azotaemia [Recovering/Resolving]
  - Off label use [Recovering/Resolving]
  - Nausea [Recovered/Resolved]
  - Haemoglobin decreased [Recovering/Resolving]
  - Constipation [Recovered/Resolved]

NARRATIVE: CASE EVENT DATE: 20221213
